FAERS Safety Report 17830995 (Version 1)
Quarter: 2020Q2

REPORT INFORMATION
  Report Type: Report from Study
  Country: CA (occurrence: CA)
  Receive Date: 20200527
  Receipt Date: 20200527
  Transmission Date: 20200714
  Serious: Yes (Other)
  Sender: FDA-Public Use
  Company Number: CA-ACTELION-A-NJ2020-201166

PATIENT
  Age: 77 Year
  Sex: Female

DRUGS (12)
  1. VITAMIN A [Concomitant]
     Active Substance: VITAMIN A
  2. DILTIAZEM. [Interacting]
     Active Substance: DILTIAZEM
     Indication: PRODUCT USED FOR UNKNOWN INDICATION
     Route: 065
  3. VITAMIN B12 [Concomitant]
     Active Substance: CYANOCOBALAMIN
  4. OMEPRAZOLE. [Concomitant]
     Active Substance: OMEPRAZOLE
  5. MULTIVITAMIN [Concomitant]
     Active Substance: VITAMINS
  6. HYDROXYCHLOROQUINE SULFATE. [Concomitant]
     Active Substance: HYDROXYCHLOROQUINE SULFATE
  7. VITAMIN D [Concomitant]
     Active Substance: VITAMIN D NOS
  8. VITALUX-S [Concomitant]
  9. ELIQUIS [Concomitant]
     Active Substance: APIXABAN
  10. OPSUMIT [Suspect]
     Active Substance: MACITENTAN
     Indication: PULMONARY ARTERIAL HYPERTENSION
     Dosage: 10 MG, QD
     Route: 048
     Dates: start: 20200121
  11. FLECAINIDE [Concomitant]
     Active Substance: FLECAINIDE
  12. SYNTHROID [Concomitant]
     Active Substance: LEVOTHYROXINE SODIUM

REACTIONS (6)
  - Cataract [Recovering/Resolving]
  - Drug interaction [Unknown]
  - Ankle fracture [Recovering/Resolving]
  - Rash [Unknown]
  - Eye haemorrhage [Recovering/Resolving]
  - Fall [Recovered/Resolved]

NARRATIVE: CASE EVENT DATE: 202002
